FAERS Safety Report 21292847 (Version 4)
Quarter: 2022Q4

REPORT INFORMATION
  Report Type: Spontaneous
  Country: JP (occurrence: JP)
  Receive Date: 20220905
  Receipt Date: 20221205
  Transmission Date: 20230113
  Serious: Yes (Hospitalization, Other)
  Sender: FDA-Public Use
  Company Number: JP-MSD-2208JPN004283J

PATIENT
  Age: 59 Year
  Sex: Male
  Weight: 58 kg

DRUGS (18)
  1. LAGEVRIO [Suspect]
     Active Substance: MOLNUPIRAVIR
     Indication: COVID-19 treatment
     Dosage: 800 MILLIGRAM, BID
     Route: 048
     Dates: start: 20220811
  2. CEFTRIAXONE SODIUM [Suspect]
     Active Substance: CEFTRIAXONE SODIUM
     Indication: Pneumonia
     Dosage: 1 GRAM, BID
     Route: 041
     Dates: start: 20220812, end: 20220816
  3. AMITIZA [Suspect]
     Active Substance: LUBIPROSTONE
     Dosage: 12 MICROGRAM, QD
     Route: 048
     Dates: start: 20220326, end: 20220402
  4. AMITIZA [Suspect]
     Active Substance: LUBIPROSTONE
     Dosage: 12 MICROGRAM, BID
     Route: 048
     Dates: start: 20220403, end: 20220420
  5. AMITIZA [Suspect]
     Active Substance: LUBIPROSTONE
     Dosage: 12 MICROGRAM, TID
     Route: 048
     Dates: start: 20220421, end: 20220425
  6. AMITIZA [Suspect]
     Active Substance: LUBIPROSTONE
     Dosage: 24 MICROGRAM, BID
     Route: 048
     Dates: start: 20220426, end: 20220812
  7. AMITIZA [Suspect]
     Active Substance: LUBIPROSTONE
     Dosage: 24 MICROGRAM, BID
     Route: 048
     Dates: start: 20220822, end: 20220822
  8. AMITIZA [Suspect]
     Active Substance: LUBIPROSTONE
     Dosage: 12 MICROGRAM, BID
     Route: 048
     Dates: start: 20220824
  9. LINAGLIPTIN [Suspect]
     Active Substance: LINAGLIPTIN
     Indication: Diabetes mellitus
     Dosage: 5 MILLIGRAM, QD
     Route: 048
  10. VOGLIBOSE [Suspect]
     Active Substance: VOGLIBOSE
     Dosage: 0.3 MILLIGRAM, TID
     Route: 048
  11. SENNOSIDES A AND B [Suspect]
     Active Substance: SENNOSIDES A AND B
     Indication: Constipation
     Dosage: 12 MILLIGRAM, QD
     Route: 048
     Dates: end: 20220812
  12. SENNOSIDES A AND B [Suspect]
     Active Substance: SENNOSIDES A AND B
     Dosage: 12 MILLIGRAM, QD
     Route: 048
  13. ASPIRIN [Concomitant]
     Active Substance: ASPIRIN
     Dosage: 100 MILLIGRAM, QD
     Route: 048
  14. POLAPREZINC [Concomitant]
     Active Substance: POLAPREZINC
     Dosage: 75 MILLIGRAM, BID
     Route: 048
  15. NIFEDIPINE [Concomitant]
     Active Substance: NIFEDIPINE
     Dosage: 40 MILLIGRAM, QD
     Route: 048
  16. NIFEDIPINE [Concomitant]
     Active Substance: NIFEDIPINE
     Dosage: 60 MILLIGRAM,, 40-20-0
     Route: 048
     Dates: start: 20220426
  17. LANTHANUM CARBONATE [Concomitant]
     Active Substance: LANTHANUM CARBONATE
     Dosage: 250 MILLIGRAM, BID
     Route: 048
  18. DARBEPOETIN ALFA [Concomitant]
     Active Substance: DARBEPOETIN ALFA
     Indication: Anaemia
     Dosage: 10 MICROGRAM
     Route: 042

REACTIONS (9)
  - Thrombocytopenia [Recovered/Resolved]
  - Leukopenia [Recovered/Resolved]
  - Liver function test abnormal [Recovered/Resolved]
  - COVID-19 pneumonia [Unknown]
  - Pneumonia aspiration [Unknown]
  - Diarrhoea [Recovered/Resolved]
  - Hypophagia [Recovered/Resolved]
  - Hypoglycaemia [Recovered/Resolved]
  - Dysphagia [Recovered/Resolved]

NARRATIVE: CASE EVENT DATE: 20220812
